FAERS Safety Report 13567948 (Version 1)
Quarter: 2017Q2

REPORT INFORMATION
  Report Type: Spontaneous
  Country: US (occurrence: US)
  Receive Date: 20170522
  Receipt Date: 20170522
  Transmission Date: 20170830
  Serious: No
  Sender: FDA-Public Use
  Company Number: US-GLAXOSMITHKLINE-US2017074550

PATIENT
  Sex: Male

DRUGS (1)
  1. POTIGA [Suspect]
     Active Substance: EZOGABINE
     Indication: SEIZURE

REACTIONS (1)
  - Drug effect incomplete [Unknown]
